FAERS Safety Report 13143871 (Version 1)
Quarter: 2017Q1

REPORT INFORMATION
  Report Type: Report from Study
  Country: BE (occurrence: BE)
  Receive Date: 20170124
  Receipt Date: 20170124
  Transmission Date: 20170428
  Serious: Yes (Death, Hospitalization)
  Sender: FDA-Public Use
  Company Number: BE-BAYER-2016-212189

PATIENT
  Sex: Male

DRUGS (6)
  1. PROLOPA [Concomitant]
     Active Substance: BENSERAZIDE\LEVODOPA
     Dosage: UNK
  2. NEXAVAR [Suspect]
     Active Substance: SORAFENIB
     Indication: HEPATOCELLULAR CARCINOMA
     Dosage: DAILY DOSE 800 MG
     Dates: start: 20161027, end: 201612
  3. RIVOTRIL [Concomitant]
     Active Substance: CLONAZEPAM
     Dosage: 2 MG, QD
  4. PANTOPRAZOLE [Concomitant]
     Active Substance: PANTOPRAZOLE SODIUM
     Dosage: 40 MG, QD
  5. COZAAR [Concomitant]
     Active Substance: LOSARTAN POTASSIUM
     Dosage: 100 MG, UNK
  6. BEFACT [CYANOCOBALAMIN,PYRIDOXINE,THIAMINE] [Concomitant]
     Dosage: UNK

REACTIONS (11)
  - Hepatocellular carcinoma [Fatal]
  - Constipation [Not Recovered/Not Resolved]
  - Nausea [Not Recovered/Not Resolved]
  - Fatigue [Not Recovered/Not Resolved]
  - Weight decreased [None]
  - Hepatic failure [Fatal]
  - Pyrexia [Recovered/Resolved]
  - Gait disturbance [None]
  - Back pain [Not Recovered/Not Resolved]
  - General physical health deterioration [None]
  - Pain [None]

NARRATIVE: CASE EVENT DATE: 20161031
